FAERS Safety Report 5661251-1 (Version None)
Quarter: 2008Q1

REPORT INFORMATION
  Report Type: 
  Country: None (occurrence: None)
  Receive Date: 20080312
  Receipt Date: 20080307
  Transmission Date: 20080703
  Serious: Yes (Other)
  Sender: FDA-Public Use
  Company Number: B0506514A

PATIENT
  Age: 31 Year
  Sex: Female

DRUGS (7)
  1. RELENZA [Suspect]
     Indication: INFLUENZA
     Dosage: 10MG TWICE PER DAY
     Route: 055
     Dates: start: 20080126, end: 20080129
  2. UNKNOWN DRUG [Concomitant]
     Indication: ACUTE TONSILLITIS
     Route: 065
     Dates: start: 20080125, end: 20080130
  3. ASVERIN [Concomitant]
     Indication: BRONCHITIS
     Dosage: 120MG PER DAY
     Route: 048
     Dates: start: 20080125, end: 20080130
  4. ANTOBRON [Concomitant]
     Indication: BRONCHITIS
     Route: 048
     Dates: start: 20080125, end: 20080130
  5. UNKNOWN DRUG [Concomitant]
     Indication: BRONCHITIS
     Route: 048
     Dates: start: 20080125, end: 20080130
  6. LYSOZYME HYDROCHLORIDE [Concomitant]
     Indication: BRONCHITIS
     Dosage: 90MG PER DAY
     Route: 048
     Dates: start: 20080125, end: 20080130
  7. ZITHROMAX [Concomitant]
     Indication: BRONCHITIS
     Dosage: 250MG PER DAY
     Route: 048
     Dates: start: 20080125, end: 20080130

REACTIONS (5)
  - DEPRESSED LEVEL OF CONSCIOUSNESS [None]
  - DIZZINESS [None]
  - FATIGUE [None]
  - FEELING ABNORMAL [None]
  - MALAISE [None]
